FAERS Safety Report 6308313-3 (Version None)
Quarter: 2009Q3

REPORT INFORMATION
  Report Type: 
  Country: None (occurrence: None)
  Receive Date: 20090813
  Receipt Date: 20090810
  Transmission Date: 20100115
  Serious: Yes (Death)
  Sender: FDA-Public Use
  Company Number: CA-B.I. PHARMACEUTICALS,INC./RIDGEFIELD-2009-CN-00545CN

PATIENT
  Sex: Female
  Weight: 40 kg

DRUGS (8)
  1. CATAPRES [Suspect]
     Indication: FACIAL PAIN
     Dosage: 200 MCG
     Route: 037
     Dates: start: 20090125, end: 20090721
  2. CATAPRES [Suspect]
     Indication: TONSIL CANCER
  3. MORPHINE [Concomitant]
     Route: 037
  4. BUPIVACAINE [Concomitant]
     Route: 037
  5. HYDROMORPHONE [Concomitant]
     Route: 058
  6. EPIVAL [Concomitant]
     Indication: CONVULSION
     Route: 048
  7. CYMBALTA [Concomitant]
     Indication: DEPRESSION
     Route: 048
  8. METHYLPHENIDATE HCL [Concomitant]
     Route: 048

REACTIONS (1)
  - ARRHYTHMIA [None]
